FAERS Safety Report 5630745-7 (Version None)
Quarter: 2008Q1

REPORT INFORMATION
  Report Type: 
  Country: None (occurrence: None)
  Receive Date: 20080219
  Receipt Date: 20080212
  Transmission Date: 20080703
  Serious: Yes (Hospitalization)
  Sender: FDA-Public Use
  Company Number: GB-AVENTIS-200811485GDDC

PATIENT
  Age: 51 Year
  Sex: Female

DRUGS (3)
  1. TAXOTERE [Suspect]
     Indication: BREAST CANCER
     Route: 042
     Dates: start: 20080122, end: 20080122
  2. CORTICOSTEROIDS [Concomitant]
     Route: 048
  3. ONDANSETRON [Concomitant]
     Indication: PREMEDICATION
     Route: 042

REACTIONS (3)
  - ABDOMINAL PAIN [None]
  - LOCALISED OEDEMA [None]
  - VASCULITIS [None]
